FAERS Safety Report 12318401 (Version 1)
Quarter: 2016Q2

REPORT INFORMATION
  Report Type: Spontaneous
  Country: JP (occurrence: JP)
  Receive Date: 20160429
  Receipt Date: 20160429
  Transmission Date: 20160815
  Serious: Yes (Life-Threatening, Hospitalization)
  Sender: FDA-Public Use
  Company Number: JP-PFIZER INC-2016151151

PATIENT
  Age: 80 Year
  Sex: Male
  Weight: 46 kg

DRUGS (7)
  1. ANAEMETRO [Suspect]
     Active Substance: METRONIDAZOLE
     Indication: CHOLECYSTITIS
     Dosage: 500 MG, 3X/DAY
     Route: 042
     Dates: start: 20160226, end: 20160301
  2. ROCEFIN [Concomitant]
     Active Substance: CEFTRIAXONE SODIUM
     Dosage: 2000 MG, 2X/DAY
     Route: 042
     Dates: start: 20160226, end: 20160303
  3. ZOSYN [Concomitant]
     Active Substance: PIPERACILLIN SODIUM\TAZOBACTAM SODIUM
     Indication: ABSCESS
  4. ZOSYN [Concomitant]
     Active Substance: PIPERACILLIN SODIUM\TAZOBACTAM SODIUM
     Indication: GALLBLADDER ABSCESS
     Dosage: UNK
     Dates: start: 20160303
  5. ANAEMETRO [Suspect]
     Active Substance: METRONIDAZOLE
     Indication: GALLBLADDER ABSCESS
  6. ZOSYN [Concomitant]
     Active Substance: PIPERACILLIN SODIUM\TAZOBACTAM SODIUM
     Indication: CHOLECYSTITIS
     Dosage: 4500 MG, 3X/DAY
     Route: 042
     Dates: start: 20160222, end: 20160225
  7. ANAEMETRO [Suspect]
     Active Substance: METRONIDAZOLE
     Indication: ABSCESS

REACTIONS (2)
  - Seizure [Recovering/Resolving]
  - Epilepsy [Unknown]

NARRATIVE: CASE EVENT DATE: 20160301
